FAERS Safety Report 8767520 (Version 1)
Quarter: 2012Q4

REPORT INFORMATION
  Report Type: 
  Country: US (occurrence: US)
  Receive Date: 20120904
  Receipt Date: 20120904
  Transmission Date: 20130627
  Serious: Yes (Life-Threatening, Other)
  Sender: FDA-Public Use
  Company Number: PHHY2012US076205

PATIENT
  Age: 18 Year
  Sex: Female

DRUGS (3)
  1. METHYLPHENIDATE [Suspect]
     Dosage: 110 mg, UNK
  2. MODAFINIL [Suspect]
     Dosage: 800 mg, UNK
  3. MOLLY^S MOSQUITO CAP [Suspect]
     Dosage: 2 DF, UNK

REACTIONS (13)
  - Cardiomyopathy acute [Recovered/Resolved]
  - Sinus tachycardia [Recovered/Resolved]
  - Dilatation ventricular [Recovered/Resolved]
  - Systolic dysfunction [Recovered/Resolved]
  - Mitral valve incompetence [Recovered/Resolved]
  - Euphoric mood [Unknown]
  - Intentional drug misuse [Unknown]
  - Asthenia [Recovered/Resolved]
  - Hypokinesia [Recovered/Resolved]
  - Headache [Recovered/Resolved]
  - Nausea [Recovered/Resolved]
  - Vomiting [Recovered/Resolved]
  - Hyperhidrosis [Recovered/Resolved]
